FAERS Safety Report 23895405 (Version 1)
Quarter: 2024Q2

REPORT INFORMATION
  Report Type: Spontaneous
  Country: FR (occurrence: FR)
  Receive Date: 20240524
  Receipt Date: 20240524
  Transmission Date: 20240717
  Serious: Yes (Death, Life-Threatening)
  Sender: FDA-Public Use
  Company Number: FR-AFSSAPS-TO2024000222

PATIENT
  Age: 70 Year
  Sex: Female
  Weight: 48 kg

DRUGS (10)
  1. QUETIAPINE [Suspect]
     Active Substance: QUETIAPINE
     Indication: Bipolar disorder
     Dosage: 150 MILLIGRAM, DAILY
     Route: 048
     Dates: end: 20240121
  2. LEVOMEPROMAZINE [Suspect]
     Active Substance: LEVOMEPROMAZINE
     Indication: Bipolar disorder
     Dosage: 150 MILLIGRAM, DAILY
     Route: 048
     Dates: end: 20240121
  3. DIAZEPAM [Suspect]
     Active Substance: DIAZEPAM
     Indication: Bipolar disorder
     Dosage: 100 GTT DROPS, DAILY
     Route: 048
     Dates: end: 20240121
  4. CLOZAPINE [Suspect]
     Active Substance: CLOZAPINE
     Indication: Bipolar disorder
     Dosage: 200 MILLIGRAM, DAILY
     Route: 048
     Dates: start: 20190712, end: 20240121
  5. LOXAPINE [Suspect]
     Active Substance: LOXAPINE
     Indication: Bipolar disorder
     Dosage: UNK
     Route: 048
     Dates: end: 20240121
  6. TRIMEPRAZINE [Suspect]
     Active Substance: TRIMEPRAZINE
     Indication: Bipolar disorder
     Dosage: UNK
     Route: 048
     Dates: end: 20240121
  7. ACETAMINOPHEN [Concomitant]
     Active Substance: ACETAMINOPHEN
     Indication: Product used for unknown indication
     Dosage: UNK
     Route: 065
  8. LEVOTHYROXINE [Concomitant]
     Active Substance: LEVOTHYROXINE\LEVOTHYROXINE SODIUM
     Indication: Product used for unknown indication
     Dosage: UNK
     Route: 065
  9. LACTULOSE [Concomitant]
     Active Substance: LACTULOSE
     Indication: Product used for unknown indication
     Dosage: UNK
     Route: 065
  10. TAHOR [Concomitant]
     Active Substance: ATORVASTATIN CALCIUM
     Indication: Product used for unknown indication
     Dosage: UNK
     Route: 065

REACTIONS (3)
  - Dysphagia [Fatal]
  - Choking [Fatal]
  - Salivary hypersecretion [Fatal]

NARRATIVE: CASE EVENT DATE: 20240101
